FAERS Safety Report 23886005 (Version 2)
Quarter: 2024Q2

REPORT INFORMATION
  Report Type: Report from Study
  Country: US (occurrence: US)
  Receive Date: 20240522
  Receipt Date: 20240606
  Transmission Date: 20240716
  Serious: Yes (Hospitalization, Disabling)
  Sender: FDA-Public Use
  Company Number: US-TAIHOP-2024-005130

PATIENT
  Age: 63 Year
  Sex: Male
  Weight: 63.9 kg

DRUGS (12)
  1. LONSURF [Suspect]
     Active Substance: TIPIRACIL HYDROCHLORIDE\TRIFLURIDINE
     Indication: Rectosigmoid cancer
     Dosage: FORM STRENGTH AND CURRENT CYCLE UNKNOWN
     Route: 048
     Dates: start: 20240420
  2. PROVENTIL [Concomitant]
     Active Substance: ALBUTEROL
     Indication: Product used for unknown indication
     Dosage: 90 MCG/ACTUATION, TAKE 1-2 PUFFS BY INHALATION EVERY 6 HRS AS NEEDED.
     Route: 048
     Dates: start: 20240220
  3. SYMBICORT [Concomitant]
     Active Substance: BUDESONIDE\FORMOTEROL FUMARATE DIHYDRATE
     Indication: Product used for unknown indication
     Dosage: 80-4.5 MCG/ACTUATION, TAKE 1-2 PUFFS BY INHALATION.
     Route: 048
     Dates: start: 20240220
  4. HYDRODIURIL [Concomitant]
     Active Substance: HYDROCHLOROTHIAZIDE
     Indication: Product used for unknown indication
     Route: 048
     Dates: start: 20240220
  5. LINZESS [Concomitant]
     Active Substance: LINACLOTIDE
     Indication: Product used for unknown indication
     Dosage: BY MOUTH EVERY MORNING
     Route: 048
     Dates: start: 20240220, end: 20240517
  6. PRINIVIL [Concomitant]
     Active Substance: LISINOPRIL
     Indication: Product used for unknown indication
     Route: 048
     Dates: start: 20240220
  7. GLUCOPHAGE [Concomitant]
     Active Substance: METFORMIN HYDROCHLORIDE
     Indication: Product used for unknown indication
     Route: 048
     Dates: start: 20240220
  8. ZOFRAN [Concomitant]
     Active Substance: ONDANSETRON HYDROCHLORIDE
     Indication: Vomiting
     Dosage: UNDER THE TONGUE EVERY 8 HRS AS NEEDED?ODT
     Route: 048
     Dates: start: 20231124
  9. ZOFRAN [Concomitant]
     Active Substance: ONDANSETRON HYDROCHLORIDE
     Indication: Nausea
  10. COMPAZINE [Concomitant]
     Active Substance: PROCHLORPERAZINE MALEATE
     Indication: Vomiting
     Dosage: EVERY 6 HRS AS NEEDED
     Route: 048
     Dates: start: 20240307
  11. COMPAZINE [Concomitant]
     Active Substance: PROCHLORPERAZINE MALEATE
     Indication: Nausea
  12. DILAUDID [Concomitant]
     Active Substance: HYDROMORPHONE HYDROCHLORIDE
     Indication: Pain
     Dosage: AS NEEDED
     Route: 048
     Dates: start: 20240416, end: 20240503

REACTIONS (13)
  - Pelvic abscess [Recovering/Resolving]
  - Asthenia [Unknown]
  - Ventricular extrasystoles [Unknown]
  - Dysuria [Unknown]
  - Back pain [Unknown]
  - Groin pain [Unknown]
  - Urinary tract infection [Unknown]
  - Anal fistula [Unknown]
  - Breath sounds abnormal [Unknown]
  - Rhonchi [Unknown]
  - Nausea [Unknown]
  - Disease progression [Unknown]
  - Abdominal pain lower [Unknown]

NARRATIVE: CASE EVENT DATE: 20240501
